FAERS Safety Report 14570506 (Version 5)
Quarter: 2018Q2

REPORT INFORMATION
  Report Type: Report from Study
  Country: None (occurrence: UY)
  Receive Date: 20180226
  Receipt Date: 20180430
  Transmission Date: 20180711
  Serious: Yes (Life-Threatening, Hospitalization, Other)
  Sender: FDA-Public Use
  Company Number: UY-ABBVIE-17K-168-2207154-00

PATIENT
  Age: 42 Year
  Sex: Male
  Weight: 56 kg

DRUGS (6)
  1. MESACRON [Concomitant]
     Indication: CROHN^S DISEASE
     Route: 048
  2. AZATHIOPRINE. [Concomitant]
     Active Substance: AZATHIOPRINE
     Indication: CROHN^S DISEASE
  3. HUMIRA [Suspect]
     Active Substance: ADALIMUMAB
     Indication: CROHN^S DISEASE
     Route: 058
     Dates: start: 20171019, end: 20171226
  4. ISONIAZIDE [Suspect]
     Active Substance: ISONIAZID
     Indication: TUBERCULOSIS
     Route: 065
  5. HUMIRA [Suspect]
     Active Substance: ADALIMUMAB
     Indication: CROHN^S DISEASE
     Route: 058
     Dates: start: 20180105, end: 20180105
  6. PREDNISONE. [Concomitant]
     Active Substance: PREDNISONE
     Indication: CROHN^S DISEASE
     Dosage: 20 OR 30 MILLIGRAMS

REACTIONS (11)
  - Tooth infection [Recovered/Resolved]
  - Toxicity to various agents [Recovered/Resolved]
  - Renal failure [Recovering/Resolving]
  - Burning sensation [Unknown]
  - Drug-induced liver injury [Recovering/Resolving]
  - Drug hypersensitivity [Recovered/Resolved]
  - Psychomotor hyperactivity [Recovering/Resolving]
  - Crohn^s disease [Not Recovered/Not Resolved]
  - Erythema [Unknown]
  - Tuberculosis [Recovering/Resolving]
  - Haemoglobin decreased [Unknown]

NARRATIVE: CASE EVENT DATE: 2018
